FAERS Safety Report 17484909 (Version 1)
Quarter: 2020Q1

REPORT INFORMATION
  Report Type: Spontaneous
  Country: JP (occurrence: JP)
  Receive Date: 20200302
  Receipt Date: 20200302
  Transmission Date: 20200409
  Serious: No
  Sender: FDA-Public Use
  Company Number: JP-ALLERGAN-2008983US

PATIENT
  Age: 57 Year
  Sex: Female

DRUGS (2)
  1. ASENAPINE MALEATE - BP [Suspect]
     Active Substance: ASENAPINE MALEATE
     Dosage: 20 MG, BID
     Route: 060
  2. ASENAPINE MALEATE - BP [Suspect]
     Active Substance: ASENAPINE MALEATE
     Indication: PRODUCT USED FOR UNKNOWN INDICATION
     Dosage: 15 MG/DAY (5 MG IN THE MORNING AND 10 MG AT BEDTIME)
     Route: 060

REACTIONS (2)
  - Bradycardia [Unknown]
  - Hypotension [Unknown]
